FAERS Safety Report 17290996 (Version 1)
Quarter: 2020Q1

REPORT INFORMATION
  Report Type: Report from Study
  Country: US (occurrence: US)
  Receive Date: 20200121
  Receipt Date: 20200121
  Transmission Date: 20200409
  Serious: Yes (Death, Hospitalization)
  Sender: FDA-Public Use
  Company Number: US-BAYER-2019-221044

PATIENT
  Age: 48 Year
  Sex: Female

DRUGS (1)
  1. NEXAVAR [Suspect]
     Active Substance: SORAFENIB
     Indication: HEPATOCELLULAR CARCINOMA
     Dosage: 200 MG, BID
     Route: 048
     Dates: start: 20191128, end: 2019

REACTIONS (5)
  - Death [Fatal]
  - Vomiting [Not Recovered/Not Resolved]
  - Off label use [None]
  - Product dose omission [None]
  - Aspiration pleural cavity [Unknown]

NARRATIVE: CASE EVENT DATE: 2019
